FAERS Safety Report 6698415-4 (Version None)
Quarter: 2010Q2

REPORT INFORMATION
  Report Type: 
  Country: None (occurrence: None)
  Receive Date: 20100427
  Receipt Date: 20100419
  Transmission Date: 20101027
  Serious: Yes (Hospitalization)
  Sender: FDA-Public Use
  Company Number: IT-ROCHE-698063

PATIENT
  Sex: Male
  Weight: 80 kg

DRUGS (3)
  1. MYCOPHENOLATE MOFETIL [Suspect]
     Route: 065
     Dates: start: 20081128
  2. TACROLIMUS [Concomitant]
  3. METHYLPREDNISOLONE [Concomitant]

REACTIONS (3)
  - DIARRHOEA [None]
  - METABOLIC ACIDOSIS [None]
  - RENAL DISORDER [None]
